FAERS Safety Report 4701241-6 (Version None)
Quarter: 2005Q2

REPORT INFORMATION
  Report Type: 
  Country: None (occurrence: None)
  Receive Date: 20050624
  Receipt Date: 20050615
  Transmission Date: 20051028
  Serious: Yes (Hospitalization, Other)
  Sender: FDA-Public Use
  Company Number: 2005088910

PATIENT
  Age: 92 Year
  Sex: Female
  Weight: 56.6996 kg

DRUGS (12)
  1. CELEBREX [Suspect]
     Indication: OSTEOARTHRITIS
     Dosage: (1 IN 1 D), ORAL
     Route: 048
  2. PREDNISONE TAB [Suspect]
     Indication: TEMPORAL ARTERITIS
     Dosage: 60 MG (1 D)
     Dates: start: 20040201
  3. PLETAL [Suspect]
     Indication: PAIN IN EXTREMITY
  4. FOLIC ACID [Concomitant]
  5. NORVASC [Concomitant]
  6. SYNTHROID [Concomitant]
  7. ASPIRIN [Concomitant]
  8. MULTIVITAMIN [Concomitant]
  9. MEMANTINE (MEMANTINE) [Concomitant]
  10. ACIPHEX [Concomitant]
  11. DITROPAN XL [Concomitant]
  12. PREMARIN [Concomitant]

REACTIONS (7)
  - APHAGIA [None]
  - ARTHRALGIA [None]
  - JAW DISORDER [None]
  - MALAISE [None]
  - PAIN IN EXTREMITY [None]
  - PARALYSIS [None]
  - TEMPORAL ARTERITIS [None]
